FAERS Safety Report 5069085-6 (Version None)
Quarter: 2006Q3

REPORT INFORMATION
  Report Type: 
  Country: None (occurrence: None)
  Receive Date: 20060731
  Receipt Date: 20060714
  Transmission Date: 20061208
  Serious: Yes (Other)
  Sender: FDA-Public Use
  Company Number: TRP_0796_2006

PATIENT
  Age: 40 Year
  Sex: Male
  Weight: 83.4619 kg

DRUGS (5)
  1. RIBASPHERE [Suspect]
     Indication: HEPATITIS C
     Dosage: 800 MG QDAY PO
     Route: 048
     Dates: start: 20060515
  2. PEG-INTRON [Suspect]
     Indication: HEPATITIS C
     Dosage: 180 MCG QWK SC
     Route: 058
     Dates: start: 20060515
  3. ALBUTEROL SULFATE [Concomitant]
  4. FLONASE [Concomitant]
  5. ADVIL [Concomitant]

REACTIONS (29)
  - ARTHROPOD BITE [None]
  - BLOOD IRON INCREASED [None]
  - CAFFEINE CONSUMPTION [None]
  - CARDIAC FLUTTER [None]
  - COAGULOPATHY [None]
  - COGNITIVE DISORDER [None]
  - CONTUSION [None]
  - DISTURBANCE IN ATTENTION [None]
  - DIZZINESS [None]
  - DRY MOUTH [None]
  - DYSGEUSIA [None]
  - DYSPHAGIA [None]
  - ECCHYMOSIS [None]
  - ECONOMIC PROBLEM [None]
  - GINGIVAL BLEEDING [None]
  - HAEMATOMA [None]
  - HYPERHIDROSIS [None]
  - INFLUENZA [None]
  - IRRITABILITY [None]
  - LACRIMAL DISORDER [None]
  - MEMORY IMPAIRMENT [None]
  - MYALGIA [None]
  - NAUSEA [None]
  - ORAL INTAKE REDUCED [None]
  - PHARYNGOLARYNGEAL PAIN [None]
  - STRESS [None]
  - TONGUE DISORDER [None]
  - WEIGHT DECREASED [None]
  - WHITE BLOOD CELL COUNT DECREASED [None]
